FAERS Safety Report 10559440 (Version 2)
Quarter: 2014Q4

REPORT INFORMATION
  Report Type: Report from Study
  Country: US (occurrence: US)
  Receive Date: 20141103
  Receipt Date: 20141103
  Transmission Date: 20150529
  Serious: Yes (Death, Hospitalization)
  Sender: FDA-Public Use
  Company Number: US-MYLANLABS-2014M1006723

PATIENT

DRUGS (1)
  1. CLOZAPINE TABLETS, USP [Suspect]
     Active Substance: CLOZAPINE
     Dosage: 600 MG, QD
     Route: 048
     Dates: end: 2014

REACTIONS (5)
  - Pelvic fracture [Fatal]
  - Respiratory failure [Fatal]
  - Abnormal behaviour [Not Recovered/Not Resolved]
  - Hip fracture [Fatal]
  - Fall [Recovered/Resolved]

NARRATIVE: CASE EVENT DATE: 2014
